FAERS Safety Report 5496883-7 (Version None)
Quarter: 2007Q4

REPORT INFORMATION
  Report Type: 
  Country: None (occurrence: None)
  Receive Date: 20071025
  Receipt Date: 20070830
  Transmission Date: 20080405
  Serious: No
  Sender: FDA-Public Use
  Company Number: A0677788A

PATIENT
  Age: 60 Year
  Sex: Male

DRUGS (3)
  1. ADVAIR DISKUS 100/50 [Suspect]
     Indication: BRONCHIAL IRRITATION
     Dosage: 1PUFF TWICE PER DAY
     Route: 055
     Dates: start: 20070827
  2. ADVAIR DISKUS 100/50 [Concomitant]
  3. LEVAQUIN [Concomitant]

REACTIONS (1)
  - DYSGEUSIA [None]
